FAERS Safety Report 5210380-5 (Version None)
Quarter: 2007Q1

REPORT INFORMATION
  Report Type: 
  Country: None (occurrence: None)
  Receive Date: 20070117
  Receipt Date: 20070104
  Transmission Date: 20070707
  Serious: Yes (Death, Hospitalization, Other)
  Sender: FDA-Public Use
  Company Number: ALZ-10551

PATIENT
  Sex: Female
  Weight: 47 kg

DRUGS (1)
  1. DOXORUBICIN HCL [Suspect]
     Indication: METASTATIC MALIGNANT MELANOMA
     Dates: start: 20010319

REACTIONS (10)
  - ANAEMIA [None]
  - ANURIA [None]
  - BACK PAIN [None]
  - CHEST DISCOMFORT [None]
  - CHEST PAIN [None]
  - DISEASE PROGRESSION [None]
  - DIZZINESS [None]
  - DYSPEPSIA [None]
  - FLUSHING [None]
  - HAEMATURIA [None]
